FAERS Safety Report 9772556 (Version 2)
Quarter: 2014Q1

REPORT INFORMATION
  Report Type: Spontaneous
  Country: US (occurrence: None)
  Receive Date: 20131218
  Receipt Date: 20140318
  Transmission Date: 20141002
  Serious: Yes (Hospitalization)
  Sender: FDA-Public Use
  Company Number: 2013CT000075

PATIENT
  Sex: Female

DRUGS (7)
  1. KORLYM [Suspect]
     Indication: CUSHING^S SYNDROME
     Route: 048
     Dates: start: 20130822
  2. SPIRONOLACTONE [Suspect]
     Indication: MINERALOCORTICOID DEFICIENCY
     Route: 048
  3. SPIRONOLACTONE [Concomitant]
  4. POTASSIUM [Concomitant]
  5. AMLODIPINE [Concomitant]
  6. METOPROLOL [Concomitant]
  7. LOSARTAN [Concomitant]

REACTIONS (3)
  - Hypokalaemia [None]
  - Oedema peripheral [None]
  - Fatigue [None]
